FAERS Safety Report 6301229-8 (Version None)
Quarter: 2009Q3

REPORT INFORMATION
  Report Type: 
  Country: None (occurrence: None)
  Receive Date: 20090806
  Receipt Date: 20090806
  Transmission Date: 20100115
  Serious: No
  Sender: FDA-Public Use
  Company Number: None

PATIENT
  Sex: Female
  Weight: 49.4421 kg

DRUGS (1)
  1. AMBIEN [Suspect]
     Indication: SLEEP DISORDER
     Dosage: 10 MG A @ BADTIME
     Dates: start: 20090610, end: 20090615

REACTIONS (2)
  - AMNESIA [None]
  - FEELING ABNORMAL [None]
